FAERS Safety Report 24657476 (Version 6)
Quarter: 2025Q4

REPORT INFORMATION
  Report Type: Spontaneous
  Country: CA (occurrence: CA)
  Receive Date: 20241125
  Receipt Date: 20251120
  Transmission Date: 20260118
  Serious: Yes (Death, Life-Threatening, Hospitalization, Disabling, Congenital Anomaly, Other)
  Sender: Haleon PLC
  Company Number: CA-HEALTHCANVIG-00914024

PATIENT
  Age: 43 Year
  Sex: Female
  Weight: 70 kg

DRUGS (283)
  1. DICLOFENAC SODIUM [Suspect]
     Active Substance: DICLOFENAC SODIUM
     Indication: Rheumatoid arthritis
     Dosage: 50 MG
  2. DICLOFENAC SODIUM [Suspect]
     Active Substance: DICLOFENAC SODIUM
     Indication: Product used for unknown indication
     Dosage: UNK
  3. DICLOFENAC SODIUM [Suspect]
     Active Substance: DICLOFENAC SODIUM
     Dosage: 50 MG
  4. DICLOFENAC SODIUM [Suspect]
     Active Substance: DICLOFENAC SODIUM
     Dosage: UNK
  5. DICLOFENAC SODIUM [Suspect]
     Active Substance: DICLOFENAC SODIUM
     Dosage: 50 MG
  6. DICLOFENAC SODIUM [Suspect]
     Active Substance: DICLOFENAC SODIUM
     Dosage: OPHTHALMIC ROUTE
  7. DICLOFENAC SODIUM [Suspect]
     Active Substance: DICLOFENAC SODIUM
     Dosage: 50 MG
  8. DICLOFENAC SODIUM [Suspect]
     Active Substance: DICLOFENAC SODIUM
     Dosage: 500 MG
  9. DICLOFENAC SODIUM [Suspect]
     Active Substance: DICLOFENAC SODIUM
     Dosage: 50 MG, QD
  10. DICLOFENAC SODIUM [Suspect]
     Active Substance: DICLOFENAC SODIUM
     Dosage: UNK
  11. DICLOFENAC SODIUM [Suspect]
     Active Substance: DICLOFENAC SODIUM
     Dosage: 50 MG
  12. DICLOFENAC SODIUM [Suspect]
     Active Substance: DICLOFENAC SODIUM
     Dosage: 100 MG
  13. DICLOFENAC SODIUM [Suspect]
     Active Substance: DICLOFENAC SODIUM
     Dosage: UNK
  14. DICLOFENAC SODIUM [Suspect]
     Active Substance: DICLOFENAC SODIUM
     Dosage: 50 G
  15. DICLOFENAC SODIUM [Suspect]
     Active Substance: DICLOFENAC SODIUM
     Dosage: 40 MG
  16. DICLOFENAC SODIUM [Suspect]
     Active Substance: DICLOFENAC SODIUM
     Dosage: UNK
  17. DICLOFENAC SODIUM [Suspect]
     Active Substance: DICLOFENAC SODIUM
     Dosage: UNK
  18. OXYCODONE [Suspect]
     Active Substance: OXYCODONE
     Indication: Product used for unknown indication
  19. DICLOFENAC POTASSIUM [Suspect]
     Active Substance: DICLOFENAC POTASSIUM
     Indication: Product used for unknown indication
  20. PERIOGARD [Suspect]
     Active Substance: CHLORHEXIDINE GLUCONATE
     Indication: Product used for unknown indication
  21. PERIOGARD [Suspect]
     Active Substance: CHLORHEXIDINE GLUCONATE
  22. ENBREL [Suspect]
     Active Substance: ETANERCEPT
     Indication: Rheumatoid arthritis
  23. ENBREL [Suspect]
     Active Substance: ETANERCEPT
     Indication: Psoriatic arthropathy
  24. ENBREL [Suspect]
     Active Substance: ETANERCEPT
  25. ENBREL [Suspect]
     Active Substance: ETANERCEPT
  26. ENBREL [Suspect]
     Active Substance: ETANERCEPT
  27. ENBREL [Suspect]
     Active Substance: ETANERCEPT
  28. ENBREL [Suspect]
     Active Substance: ETANERCEPT
  29. CALTRATE [Suspect]
     Active Substance: CALCIUM CARBONATE
     Indication: Product used for unknown indication
  30. OTEZLA [Suspect]
     Active Substance: APREMILAST
     Indication: Product used for unknown indication
  31. OTEZLA [Suspect]
     Active Substance: APREMILAST
  32. OTEZLA [Suspect]
     Active Substance: APREMILAST
  33. TUMS ULTRA [Suspect]
     Active Substance: CALCIUM CARBONATE
     Indication: Product used for unknown indication
  34. CALTRATE [Suspect]
     Active Substance: CALCIUM CARBONATE
     Indication: Product used for unknown indication
  35. TOCILIZUMAB [Suspect]
     Active Substance: TOCILIZUMAB
     Indication: Rheumatoid arthritis
  36. ACETAMINOPHEN [Suspect]
     Active Substance: ACETAMINOPHEN
     Indication: Product used for unknown indication
  37. RITUXIMAB [Suspect]
     Active Substance: RITUXIMAB
     Indication: Rheumatoid arthritis
  38. RITUXIMAB [Suspect]
     Active Substance: RITUXIMAB
  39. RITUXIMAB [Suspect]
     Active Substance: RITUXIMAB
  40. RITUXIMAB [Suspect]
     Active Substance: RITUXIMAB
  41. RITUXIMAB [Suspect]
     Active Substance: RITUXIMAB
  42. RITUXIMAB [Suspect]
     Active Substance: RITUXIMAB
  43. RITUXIMAB [Suspect]
     Active Substance: RITUXIMAB
  44. RITUXIMAB [Suspect]
     Active Substance: RITUXIMAB
  45. PREDNISONE [Suspect]
     Active Substance: PREDNISONE
     Indication: Rheumatoid arthritis
  46. PREDNISONE [Suspect]
     Active Substance: PREDNISONE
  47. PREDNISONE [Suspect]
     Active Substance: PREDNISONE
  48. PREDNISONE [Suspect]
     Active Substance: PREDNISONE
  49. PREDNISONE [Suspect]
     Active Substance: PREDNISONE
  50. PREDNISONE [Suspect]
     Active Substance: PREDNISONE
  51. PREDNISONE [Suspect]
     Active Substance: PREDNISONE
  52. PREDNISONE [Suspect]
     Active Substance: PREDNISONE
  53. CIMZIA [Suspect]
     Active Substance: CERTOLIZUMAB PEGOL
     Indication: Rheumatoid arthritis
  54. CIMZIA [Suspect]
     Active Substance: CERTOLIZUMAB PEGOL
  55. CIMZIA [Suspect]
     Active Substance: CERTOLIZUMAB PEGOL
  56. DOXYCYCLINE [Suspect]
     Active Substance: DOXYCYCLINE
     Indication: Product used for unknown indication
  57. FOLIC ACID [Suspect]
     Active Substance: FOLIC ACID
     Indication: Rheumatoid arthritis
  58. FOLIC ACID [Suspect]
     Active Substance: FOLIC ACID
  59. FOLIC ACID [Suspect]
     Active Substance: FOLIC ACID
  60. FOLIC ACID [Suspect]
     Active Substance: FOLIC ACID
  61. FOLIC ACID [Suspect]
     Active Substance: FOLIC ACID
     Dosage: 5 UNK
  62. FOLIC ACID [Suspect]
     Active Substance: FOLIC ACID
  63. FOLIC ACID [Suspect]
     Active Substance: FOLIC ACID
  64. FOLIC ACID [Suspect]
     Active Substance: FOLIC ACID
  65. FOLIC ACID [Suspect]
     Active Substance: FOLIC ACID
  66. PHTHALYLSULFATHIAZOLE [Suspect]
     Active Substance: PHTHALYLSULFATHIAZOLE
     Indication: Rheumatoid arthritis
  67. PHTHALYLSULFATHIAZOLE [Suspect]
     Active Substance: PHTHALYLSULFATHIAZOLE
  68. PHTHALYLSULFATHIAZOLE [Suspect]
     Active Substance: PHTHALYLSULFATHIAZOLE
  69. PHTHALYLSULFATHIAZOLE [Suspect]
     Active Substance: PHTHALYLSULFATHIAZOLE
  70. DESOXIMETASONE [Suspect]
     Active Substance: DESOXIMETASONE
     Indication: Rheumatoid arthritis
  71. DESOXIMETASONE [Suspect]
     Active Substance: DESOXIMETASONE
  72. DESOXIMETASONE [Suspect]
     Active Substance: DESOXIMETASONE
  73. DESOXIMETASONE [Suspect]
     Active Substance: DESOXIMETASONE
  74. DESOXIMETASONE [Suspect]
     Active Substance: DESOXIMETASONE
     Dosage: TOPICAL ROUTE
  75. DESOXIMETASONE [Suspect]
     Active Substance: DESOXIMETASONE
     Dosage: TOPICAL ROUTE
  76. PLAQUENIL [Suspect]
     Active Substance: HYDROXYCHLOROQUINE SULFATE
     Indication: Rheumatoid arthritis
     Dosage: 1 DOSAGE FORM, QD
  77. PLAQUENIL [Suspect]
     Active Substance: HYDROXYCHLOROQUINE SULFATE
     Dosage: 40 MG, QD
  78. PLAQUENIL [Suspect]
     Active Substance: HYDROXYCHLOROQUINE SULFATE
  79. PLAQUENIL [Suspect]
     Active Substance: HYDROXYCHLOROQUINE SULFATE
  80. PLAQUENIL [Suspect]
     Active Substance: HYDROXYCHLOROQUINE SULFATE
  81. PLAQUENIL [Suspect]
     Active Substance: HYDROXYCHLOROQUINE SULFATE
     Dosage: 40 MG, QD
  82. PLAQUENIL [Suspect]
     Active Substance: HYDROXYCHLOROQUINE SULFATE
     Dosage: 400 MG, QD
  83. PLAQUENIL [Suspect]
     Active Substance: HYDROXYCHLOROQUINE SULFATE
  84. PLAQUENIL [Suspect]
     Active Substance: HYDROXYCHLOROQUINE SULFATE
  85. VOLTAREN [Suspect]
     Active Substance: DICLOFENAC SODIUM
     Indication: Product used for unknown indication
  86. ACTEMRA [Suspect]
     Active Substance: TOCILIZUMAB
     Indication: Rheumatoid arthritis
     Dosage: UNKNOWN TO NOV-2015
  87. ACTEMRA [Suspect]
     Active Substance: TOCILIZUMAB
  88. ACTEMRA [Suspect]
     Active Substance: TOCILIZUMAB
  89. ACTEMRA [Suspect]
     Active Substance: TOCILIZUMAB
  90. ACTEMRA [Suspect]
     Active Substance: TOCILIZUMAB
  91. ACTEMRA [Suspect]
     Active Substance: TOCILIZUMAB
  92. HYDROXYCHLOROQUINE SULFATE [Suspect]
     Active Substance: HYDROXYCHLOROQUINE SULFATE
     Indication: Rheumatoid arthritis
  93. HYDROXYCHLOROQUINE SULFATE [Suspect]
     Active Substance: HYDROXYCHLOROQUINE SULFATE
  94. HYDROXYCHLOROQUINE SULFATE [Suspect]
     Active Substance: HYDROXYCHLOROQUINE SULFATE
  95. HYDROXYCHLOROQUINE SULFATE [Suspect]
     Active Substance: HYDROXYCHLOROQUINE SULFATE
     Dosage: 400 MG, QD
  96. HYDROXYCHLOROQUINE SULFATE [Suspect]
     Active Substance: HYDROXYCHLOROQUINE SULFATE
  97. HYDROXYCHLOROQUINE SULFATE [Suspect]
     Active Substance: HYDROXYCHLOROQUINE SULFATE
  98. HYDROXYCHLOROQUINE SULFATE [Suspect]
     Active Substance: HYDROXYCHLOROQUINE SULFATE
  99. HYDROXYCHLOROQUINE SULFATE [Suspect]
     Active Substance: HYDROXYCHLOROQUINE SULFATE
  100. SULFAMETHOXAZOLE\TRIMETHOPRIM [Suspect]
     Active Substance: SULFAMETHOXAZOLE\TRIMETHOPRIM
     Indication: Product used for unknown indication
  101. HUMIRA [Suspect]
     Active Substance: ADALIMUMAB
     Indication: Rheumatoid arthritis
  102. HUMIRA [Suspect]
     Active Substance: ADALIMUMAB
  103. LYRICA [Suspect]
     Active Substance: PREGABALIN
     Indication: Product used for unknown indication
     Dosage: UNK
  104. LYRICA [Suspect]
     Active Substance: PREGABALIN
  105. CETIRIZINE [Suspect]
     Active Substance: CETIRIZINE HYDROCHLORIDE
     Indication: Rheumatoid arthritis
  106. CETIRIZINE [Suspect]
     Active Substance: CETIRIZINE HYDROCHLORIDE
  107. APREMILAST [Suspect]
     Active Substance: APREMILAST
     Indication: Product used for unknown indication
  108. INFLIXIMAB [Suspect]
     Active Substance: INFLIXIMAB
     Indication: Rheumatoid arthritis
  109. INFLIXIMAB [Suspect]
     Active Substance: INFLIXIMAB
  110. STELARA [Suspect]
     Active Substance: USTEKINUMAB
     Indication: Product used for unknown indication
  111. STELARA [Suspect]
     Active Substance: USTEKINUMAB
  112. SIMPONI [Suspect]
     Active Substance: GOLIMUMAB
     Indication: Rheumatoid arthritis
  113. SIMPONI [Suspect]
     Active Substance: GOLIMUMAB
  114. SIMPONI [Suspect]
     Active Substance: GOLIMUMAB
  115. MYCOPHENOLATE MOFETIL [Suspect]
     Active Substance: MYCOPHENOLATE MOFETIL
     Indication: Product used for unknown indication
  116. SULFAMETHOXAZOLE [Suspect]
     Active Substance: SULFAMETHOXAZOLE
     Indication: Product used for unknown indication
  117. FOSAMAX [Suspect]
     Active Substance: ALENDRONATE SODIUM
     Indication: Rheumatoid arthritis
  118. FOSAMAX [Suspect]
     Active Substance: ALENDRONATE SODIUM
  119. FOSAMAX [Suspect]
     Active Substance: ALENDRONATE SODIUM
  120. FOSAMAX [Suspect]
     Active Substance: ALENDRONATE SODIUM
  121. ADALIMUMAB [Suspect]
     Active Substance: ADALIMUMAB
     Indication: Rheumatoid arthritis
  122. PREDNISONE [Suspect]
     Active Substance: PREDNISONE
     Indication: Rheumatoid arthritis
  123. PREDNISONE [Suspect]
     Active Substance: PREDNISONE
  124. COSENTYX [Suspect]
     Active Substance: SECUKINUMAB
     Indication: Psoriatic arthropathy
     Dosage: PRE-FILLED SYRINGE
  125. COSENTYX [Suspect]
     Active Substance: SECUKINUMAB
     Dosage: PRE-FILLED SYRINGE (DEVICE)
  126. COSENTYX [Suspect]
     Active Substance: SECUKINUMAB
  127. PSEUDOEPHEDRINE HYDROCHLORIDE [Suspect]
     Active Substance: PSEUDOEPHEDRINE HYDROCHLORIDE
     Indication: Product used for unknown indication
  128. PSEUDOEPHEDRINE HYDROCHLORIDE [Suspect]
     Active Substance: PSEUDOEPHEDRINE HYDROCHLORIDE
  129. PSEUDOEPHEDRINE HYDROCHLORIDE [Suspect]
     Active Substance: PSEUDOEPHEDRINE HYDROCHLORIDE
  130. PSEUDOEPHEDRINE HYDROCHLORIDE [Suspect]
     Active Substance: PSEUDOEPHEDRINE HYDROCHLORIDE
  131. CELEBREX [Suspect]
     Active Substance: CELECOXIB
     Indication: Arthritis
     Dosage: 2 UNK
  132. CELEBREX [Suspect]
     Active Substance: CELECOXIB
     Dosage: 2 UNK
  133. CELEBREX [Suspect]
     Active Substance: CELECOXIB
  134. FLUMETHASONE PIVALATE [Suspect]
     Active Substance: FLUMETHASONE PIVALATE
     Indication: Rheumatoid arthritis
  135. SULFASALAZINE [Suspect]
     Active Substance: SULFASALAZINE
     Indication: Rheumatoid arthritis
  136. SULFASALAZINE [Suspect]
     Active Substance: SULFASALAZINE
  137. SULFASALAZINE [Suspect]
     Active Substance: SULFASALAZINE
  138. SULFASALAZINE [Suspect]
     Active Substance: SULFASALAZINE
  139. SULFASALAZINE [Suspect]
     Active Substance: SULFASALAZINE
  140. SULFASALAZINE [Suspect]
     Active Substance: SULFASALAZINE
  141. SULFASALAZINE [Suspect]
     Active Substance: SULFASALAZINE
  142. SULFASALAZINE [Suspect]
     Active Substance: SULFASALAZINE
  143. SULFASALAZINE [Suspect]
     Active Substance: SULFASALAZINE
  144. SULFASALAZINE [Suspect]
     Active Substance: SULFASALAZINE
  145. SULFASALAZINE [Suspect]
     Active Substance: SULFASALAZINE
  146. SULFASALAZINE [Suspect]
     Active Substance: SULFASALAZINE
  147. SULFASALAZINE [Suspect]
     Active Substance: SULFASALAZINE
  148. SULFASALAZINE [Suspect]
     Active Substance: SULFASALAZINE
  149. REMICADE [Suspect]
     Active Substance: INFLIXIMAB
     Indication: Rheumatoid arthritis
  150. REMICADE [Suspect]
     Active Substance: INFLIXIMAB
  151. REMICADE [Suspect]
     Active Substance: INFLIXIMAB
  152. REMICADE [Suspect]
     Active Substance: INFLIXIMAB
  153. USTEKINUMAB [Suspect]
     Active Substance: USTEKINUMAB
     Indication: Product used for unknown indication
  154. USTEKINUMAB [Suspect]
     Active Substance: USTEKINUMAB
  155. ARAVA [Suspect]
     Active Substance: LEFLUNOMIDE
     Indication: Rheumatoid arthritis
  156. ARAVA [Suspect]
     Active Substance: LEFLUNOMIDE
  157. ARAVA [Suspect]
     Active Substance: LEFLUNOMIDE
  158. ARAVA [Suspect]
     Active Substance: LEFLUNOMIDE
  159. ARAVA [Suspect]
     Active Substance: LEFLUNOMIDE
  160. METHOTREXATE [Suspect]
     Active Substance: METHOTREXATE
     Indication: Rheumatoid arthritis
  161. METHOTREXATE [Suspect]
     Active Substance: METHOTREXATE
  162. METHOTREXATE [Suspect]
     Active Substance: METHOTREXATE
  163. METHOTREXATE [Suspect]
     Active Substance: METHOTREXATE
  164. METHOTREXATE [Suspect]
     Active Substance: METHOTREXATE
  165. METHOTREXATE [Suspect]
     Active Substance: METHOTREXATE
  166. METHOTREXATE [Suspect]
     Active Substance: METHOTREXATE
  167. METHOTREXATE [Suspect]
     Active Substance: METHOTREXATE
  168. METHOTREXATE [Suspect]
     Active Substance: METHOTREXATE
  169. METHOTREXATE [Suspect]
     Active Substance: METHOTREXATE
  170. METHOTREXATE [Suspect]
     Active Substance: METHOTREXATE
  171. METHOTREXATE [Suspect]
     Active Substance: METHOTREXATE
  172. METHOTREXATE [Suspect]
     Active Substance: METHOTREXATE
  173. METHOTREXATE [Suspect]
     Active Substance: METHOTREXATE
  174. METHOTREXATE [Suspect]
     Active Substance: METHOTREXATE
  175. METHOTREXATE [Suspect]
     Active Substance: METHOTREXATE
  176. METHOTREXATE [Suspect]
     Active Substance: METHOTREXATE
     Dosage: 2012/2014
  177. CHLORAPREP [Suspect]
     Active Substance: CHLORHEXIDINE GLUCONATE\ISOPROPYL ALCOHOL
     Indication: Product used for unknown indication
  178. NAPROXEN SODIUM [Suspect]
     Active Substance: NAPROXEN SODIUM
     Indication: Rheumatoid arthritis
     Dosage: 500 MG, BID
  179. HYRIMOZ [Suspect]
     Active Substance: ADALIMUMAB-ADAZ
     Indication: Rheumatoid arthritis
     Dosage: PRE-FILLED SYRINGE+X100L
  180. ORENCIA [Suspect]
     Active Substance: ABATACEPT
     Indication: Rheumatoid arthritis
  181. ORENCIA [Suspect]
     Active Substance: ABATACEPT
  182. ORENCIA [Suspect]
     Active Substance: ABATACEPT
  183. ORENCIA [Suspect]
     Active Substance: ABATACEPT
  184. ORENCIA [Suspect]
     Active Substance: ABATACEPT
  185. ORENCIA [Suspect]
     Active Substance: ABATACEPT
  186. ORENCIA [Suspect]
     Active Substance: ABATACEPT
  187. ORENCIA [Suspect]
     Active Substance: ABATACEPT
  188. ORENCIA [Suspect]
     Active Substance: ABATACEPT
  189. ORENCIA [Suspect]
     Active Substance: ABATACEPT
  190. ORENCIA [Suspect]
     Active Substance: ABATACEPT
  191. ORENCIA [Suspect]
     Active Substance: ABATACEPT
  192. ORENCIA [Suspect]
     Active Substance: ABATACEPT
  193. ORENCIA [Suspect]
     Active Substance: ABATACEPT
  194. ORENCIA [Suspect]
     Active Substance: ABATACEPT
  195. ORENCIA [Suspect]
     Active Substance: ABATACEPT
  196. CORTISONE ACETATE [Suspect]
     Active Substance: CORTISONE ACETATE
     Indication: Rheumatoid arthritis
     Dosage: TOPICAL ROUTE
  197. CORTISONE ACETATE [Suspect]
     Active Substance: CORTISONE ACETATE
     Dosage: TOPICAL ROUTE
  198. CORTISONE ACETATE [Suspect]
     Active Substance: CORTISONE ACETATE
  199. CORTISONE ACETATE [Suspect]
     Active Substance: CORTISONE ACETATE
     Dosage: TOPICAL ROUTE
  200. CORTISONE ACETATE [Suspect]
     Active Substance: CORTISONE ACETATE
  201. CORTISONE ACETATE [Suspect]
     Active Substance: CORTISONE ACETATE
  202. CORTISONE ACETATE [Suspect]
     Active Substance: CORTISONE ACETATE
  203. CETIRIZINE HYDROCHLORIDE [Suspect]
     Active Substance: CETIRIZINE HYDROCHLORIDE
     Indication: Product used for unknown indication
  204. PREDNISONE [Suspect]
     Active Substance: PREDNISONE
     Indication: Rheumatoid arthritis
  205. PREDNISONE [Suspect]
     Active Substance: PREDNISONE
  206. PREDNISONE [Suspect]
     Active Substance: PREDNISONE
  207. PREDNISONE [Suspect]
     Active Substance: PREDNISONE
  208. TOFACITINIB [Suspect]
     Active Substance: TOFACITINIB
     Indication: Rheumatoid arthritis
  209. TOFACITINIB [Suspect]
     Active Substance: TOFACITINIB
  210. TOFACITINIB [Suspect]
     Active Substance: TOFACITINIB
  211. TOFACITINIB [Suspect]
     Active Substance: TOFACITINIB
  212. ERELZI [Suspect]
     Active Substance: ETANERCEPT-SZZS
     Indication: Rheumatoid arthritis
     Dosage: 50 MG, QW (1 EVERY 1 WEEK)
  213. ERELZI [Suspect]
     Active Substance: ETANERCEPT-SZZS
     Dosage: PRE-FILLED SYRINGE+X100L
  214. ALENDRONATE SODIUM [Suspect]
     Active Substance: ALENDRONATE SODIUM
     Indication: Rheumatoid arthritis
  215. ALENDRONATE SODIUM [Suspect]
     Active Substance: ALENDRONATE SODIUM
  216. ALENDRONATE SODIUM [Suspect]
     Active Substance: ALENDRONATE SODIUM
  217. ALENDRONATE SODIUM [Suspect]
     Active Substance: ALENDRONATE SODIUM
  218. CETIRIZINE HYDROCHLORIDE\PSEUDOEPHEDRINE HYDROCHLORIDE [Suspect]
     Active Substance: CETIRIZINE HYDROCHLORIDE\PSEUDOEPHEDRINE HYDROCHLORIDE
     Indication: Rheumatoid arthritis
  219. CETIRIZINE HYDROCHLORIDE\PSEUDOEPHEDRINE HYDROCHLORIDE [Suspect]
     Active Substance: CETIRIZINE HYDROCHLORIDE\PSEUDOEPHEDRINE HYDROCHLORIDE
     Indication: Product used for unknown indication
  220. OXYCODONE TEREPHTHALATE [Suspect]
     Active Substance: OXYCODONE TEREPHTHALATE
     Indication: Product used for unknown indication
  221. GOLIMUMAB [Suspect]
     Active Substance: GOLIMUMAB
     Indication: Rheumatoid arthritis
  222. TOFACITINIB CITRATE [Suspect]
     Active Substance: TOFACITINIB CITRATE
     Indication: Rheumatoid arthritis
  223. CORTISONE [Suspect]
     Active Substance: CORTISONE
     Indication: Rheumatoid arthritis
     Dosage: TOPICAL ROUTE
  224. CORTISONE [Suspect]
     Active Substance: CORTISONE
  225. CORTISONE [Suspect]
     Active Substance: CORTISONE
  226. HYDROXYCHLOROQUINE [Suspect]
     Active Substance: HYDROXYCHLOROQUINE
     Indication: Rheumatoid arthritis
  227. HYDROXYCHLOROQUINE [Suspect]
     Active Substance: HYDROXYCHLOROQUINE
     Dosage: 400 MG, QD (1 EVERY 1 DAYS)
  228. HYDROXYCHLOROQUINE [Suspect]
     Active Substance: HYDROXYCHLOROQUINE
  229. CETIRIZINE HYDROCHLORIDE\PSEUDOEPHEDRINE HYDROCHLORIDE [Suspect]
     Active Substance: CETIRIZINE HYDROCHLORIDE\PSEUDOEPHEDRINE HYDROCHLORIDE
     Indication: Product used for unknown indication
  230. DICLOFENAC POTASSIUM [Suspect]
     Active Substance: DICLOFENAC POTASSIUM
     Indication: Rheumatoid arthritis
     Dosage: UNK
  231. DICLOFENAC POTASSIUM [Suspect]
     Active Substance: DICLOFENAC POTASSIUM
  232. DICLOFENAC POTASSIUM [Suspect]
     Active Substance: DICLOFENAC POTASSIUM
     Dosage: 50 MG
  233. DICLOFENAC POTASSIUM [Suspect]
     Active Substance: DICLOFENAC POTASSIUM
     Dosage: 225 MG
  234. DICLOFENAC POTASSIUM [Suspect]
     Active Substance: DICLOFENAC POTASSIUM
     Dosage: UNK
  235. DICLOFENAC POTASSIUM [Suspect]
     Active Substance: DICLOFENAC POTASSIUM
  236. TUMS EX [Suspect]
     Active Substance: CALCIUM CARBONATE
     Indication: Product used for unknown indication
  237. TUMS EX [Suspect]
     Active Substance: CALCIUM CARBONATE
  238. TUMS EX [Suspect]
     Active Substance: CALCIUM CARBONATE
  239. TUMS EX [Suspect]
     Active Substance: CALCIUM CARBONATE
  240. VOLTAREN [Suspect]
     Active Substance: DICLOFENAC SODIUM
     Indication: Product used for unknown indication
  241. LEFLUNOMIDE [Suspect]
     Active Substance: LEFLUNOMIDE
     Indication: Product used for unknown indication
  242. COSENTYX [Concomitant]
     Active Substance: SECUKINUMAB
     Indication: Rheumatoid arthritis
     Dosage: UNKNOWN
  243. COSENTYX [Concomitant]
     Active Substance: SECUKINUMAB
     Indication: Psoriatic arthropathy
     Dosage: UNKNOWN
  244. COSENTYX [Concomitant]
     Active Substance: SECUKINUMAB
     Dosage: UNKNOWN
  245. COSENTYX [Concomitant]
     Active Substance: SECUKINUMAB
     Dosage: UNKNOWN
  246. TYLENOL [Concomitant]
     Active Substance: ACETAMINOPHEN
     Indication: Product used for unknown indication
  247. RAMIPRIL [Concomitant]
     Active Substance: RAMIPRIL
     Indication: Product used for unknown indication
  248. LEFLUNOMIDE [Concomitant]
     Active Substance: LEFLUNOMIDE
     Indication: Product used for unknown indication
  249. ETHINYL ESTRADIOL [Concomitant]
     Active Substance: ETHINYL ESTRADIOL
     Indication: Product used for unknown indication
  250. LEFLUNOMIDE [Concomitant]
     Active Substance: LEFLUNOMIDE
     Indication: Product used for unknown indication
  251. PANTOPRAZOLE [Concomitant]
     Active Substance: PANTOPRAZOLE
     Indication: Product used for unknown indication
  252. CAFFEINE CITRATE [Concomitant]
     Active Substance: CAFFEINE CITRATE
     Indication: Product used for unknown indication
  253. DESOGESTREL\ETHINYL ESTRADIOL [Concomitant]
     Active Substance: DESOGESTREL\ETHINYL ESTRADIOL
     Indication: Product used for unknown indication
  254. DESOGESTREL\ETHINYL ESTRADIOL [Concomitant]
     Active Substance: DESOGESTREL\ETHINYL ESTRADIOL
  255. IBUPROFEN [Concomitant]
     Active Substance: IBUPROFEN
     Indication: Product used for unknown indication
  256. LISINOPRIL [Concomitant]
     Active Substance: LISINOPRIL
     Indication: Product used for unknown indication
  257. CAFFEINE [Concomitant]
     Active Substance: CAFFEINE
     Indication: Product used for unknown indication
  258. ERGOCALCIFEROL [Concomitant]
     Active Substance: ERGOCALCIFEROL
     Indication: Product used for unknown indication
  259. PREDNISOLONE [Concomitant]
     Active Substance: PREDNISOLONE
     Indication: Product used for unknown indication
  260. CODEINE [Concomitant]
     Active Substance: CODEINE
     Indication: Product used for unknown indication
  261. MORPHINE [Concomitant]
     Active Substance: MORPHINE
     Indication: Product used for unknown indication
  262. QUETIAPINE [Concomitant]
     Active Substance: QUETIAPINE
     Indication: Product used for unknown indication
  263. TYLENOL WITH CODEINE [Concomitant]
     Active Substance: ACETAMINOPHEN\CODEINE PHOSPHATE
     Indication: Product used for unknown indication
  264. HYDROCORTISONE ACETATE [Concomitant]
     Active Substance: HYDROCORTISONE ACETATE
     Indication: Product used for unknown indication
  265. VITAMIN D3 [Concomitant]
     Active Substance: CHOLECALCIFEROL
     Indication: Product used for unknown indication
  266. ZOPICLONE [Concomitant]
     Active Substance: ZOPICLONE
     Indication: Product used for unknown indication
  267. ZOPICLONE [Concomitant]
     Active Substance: ZOPICLONE
  268. PANTOPRAZOLE SODIUM [Concomitant]
     Active Substance: PANTOPRAZOLE SODIUM
     Indication: Product used for unknown indication
  269. LEVOTHYROXINE SODIUM [Concomitant]
     Active Substance: LEVOTHYROXINE SODIUM
     Indication: Product used for unknown indication
  270. PIROXICAM [Concomitant]
     Active Substance: PIROXICAM
     Indication: Product used for unknown indication
  271. CALCIUM GLUCONATE [Concomitant]
     Active Substance: CALCIUM GLUCONATE
     Indication: Product used for unknown indication
  272. AZATHIOPRINE [Concomitant]
     Active Substance: AZATHIOPRINE
     Indication: Product used for unknown indication
  273. ZESTRIL [Concomitant]
     Active Substance: LISINOPRIL
     Indication: Product used for unknown indication
  274. ZESTRIL [Concomitant]
     Active Substance: LISINOPRIL
  275. ALBUTEROL [Concomitant]
     Active Substance: ALBUTEROL
     Indication: Product used for unknown indication
  276. DESOGESTREL\ETHINYL ESTRADIOL [Concomitant]
     Active Substance: DESOGESTREL\ETHINYL ESTRADIOL
     Indication: Product used for unknown indication
  277. DESOGESTREL\ETHINYL ESTRADIOL [Concomitant]
     Active Substance: DESOGESTREL\ETHINYL ESTRADIOL
  278. DEXAMETHASONE [Concomitant]
     Active Substance: DEXAMETHASONE
     Indication: Product used for unknown indication
  279. MELOXICAM [Concomitant]
     Active Substance: MELOXICAM
     Indication: Product used for unknown indication
  280. ERYTHROMYCIN STEARATE [Concomitant]
     Active Substance: ERYTHROMYCIN STEARATE
     Indication: Product used for unknown indication
  281. MAGNESIUM [Concomitant]
     Active Substance: MAGNESIUM
     Indication: Product used for unknown indication
  282. VITAMIN C [Concomitant]
     Active Substance: ASCORBIC ACID
     Indication: Product used for unknown indication
  283. GLUCOSAMINE [Concomitant]
     Active Substance: GLUCOSAMINE
     Indication: Product used for unknown indication

REACTIONS (196)
  - Drug-induced liver injury [Fatal]
  - Product use issue [Fatal]
  - Pain [Fatal]
  - Off label use [Fatal]
  - Pyrexia [Fatal]
  - Road traffic accident [Fatal]
  - Muscle spasms [Fatal]
  - Chest pain [Fatal]
  - Sleep disorder due to general medical condition, insomnia type [Not Recovered/Not Resolved]
  - Swelling [Fatal]
  - Paraesthesia [Fatal]
  - Facet joint syndrome [Fatal]
  - Urticaria [Fatal]
  - Peripheral venous disease [Fatal]
  - Vomiting [Unknown]
  - Sciatica [Unknown]
  - Rash [Fatal]
  - Prescribed overdose [Fatal]
  - Wheezing [Fatal]
  - Obesity [Fatal]
  - Pain in extremity [Fatal]
  - Lupus vulgaris [Fatal]
  - Sinusitis [Fatal]
  - Peripheral swelling [Fatal]
  - Therapeutic product effect decreased [Fatal]
  - Rheumatic fever [Fatal]
  - Psoriatic arthropathy [Fatal]
  - Rheumatoid factor positive [Fatal]
  - Stomatitis [Fatal]
  - Type 2 diabetes mellitus [Fatal]
  - Pruritus [Fatal]
  - Therapy non-responder [Unknown]
  - Product use in unapproved indication [Fatal]
  - Weight increased [Fatal]
  - Treatment failure [Fatal]
  - Wound [Fatal]
  - Pericarditis [Fatal]
  - Swollen joint count increased [Not Recovered/Not Resolved]
  - Breast cancer stage II [Fatal]
  - Ulcer haemorrhage [Fatal]
  - Lupus-like syndrome [Fatal]
  - Breast cancer stage III [Fatal]
  - Hepatic cirrhosis [Fatal]
  - Autoimmune disorder [Fatal]
  - Crohn^s disease [Fatal]
  - Pulmonary fibrosis [Fatal]
  - Drug tolerance decreased [Fatal]
  - Liver injury [Fatal]
  - Wound infection [Fatal]
  - Glossodynia [Fatal]
  - Respiratory disorder [Fatal]
  - Abdominal discomfort [Fatal]
  - Diarrhoea [Fatal]
  - Nausea [Fatal]
  - Dizziness [Fatal]
  - Decreased appetite [Fatal]
  - Blister [Fatal]
  - Musculoskeletal stiffness [Fatal]
  - Alopecia [Fatal]
  - Headache [Fatal]
  - Bursitis [Fatal]
  - General physical health deterioration [Fatal]
  - Insomnia [Fatal]
  - Anxiety [Fatal]
  - Lower limb fracture [Fatal]
  - Blepharospasm [Fatal]
  - C-reactive protein increased [Fatal]
  - Drug hypersensitivity [Fatal]
  - Anti-cyclic citrullinated peptide antibody positive [Fatal]
  - Neck pain [Fatal]
  - Epilepsy [Fatal]
  - Systemic lupus erythematosus [Fatal]
  - Deep vein thrombosis postoperative [Fatal]
  - Liver disorder [Fatal]
  - Delirium [Fatal]
  - Lower respiratory tract infection [Fatal]
  - Helicobacter infection [Fatal]
  - Pemphigus [Fatal]
  - Synovitis [Fatal]
  - Duodenal ulcer perforation [Fatal]
  - Rheumatoid arthritis [Fatal]
  - Arthralgia [Fatal]
  - Pneumonia [Fatal]
  - Blood cholesterol increased [Fatal]
  - Hepatic enzyme increased [Fatal]
  - Injury [Fatal]
  - Fatigue [Fatal]
  - Hand deformity [Fatal]
  - Hypertension [Fatal]
  - Fibromyalgia [Fatal]
  - Arthropathy [Fatal]
  - Malaise [Fatal]
  - Joint swelling [Fatal]
  - Abdominal pain upper [Fatal]
  - Hypoaesthesia [Fatal]
  - Infusion related reaction [Fatal]
  - Contusion [Fatal]
  - Asthma [Fatal]
  - Depression [Fatal]
  - Gastrooesophageal reflux disease [Fatal]
  - Asthenia [Fatal]
  - Confusional state [Fatal]
  - Musculoskeletal pain [Fatal]
  - Muscle injury [Fatal]
  - Lung disorder [Fatal]
  - Night sweats [Fatal]
  - Taste disorder [Fatal]
  - Osteoarthritis [Fatal]
  - Adverse drug reaction [Not Recovered/Not Resolved]
  - Drug ineffective [Fatal]
  - Psoriasis [Fatal]
  - Maternal exposure during pregnancy [Fatal]
  - Loss of consciousness [Not Recovered/Not Resolved]
  - Adrenal insufficiency [Not Recovered/Not Resolved]
  - Condition aggravated [Fatal]
  - Mobility decreased [Not Recovered/Not Resolved]
  - Oedema [Unknown]
  - Abdominal pain [Not Recovered/Not Resolved]
  - Infection [Fatal]
  - Back injury [Fatal]
  - Gait inability [Fatal]
  - Migraine [Fatal]
  - X-ray abnormal [Fatal]
  - Adjustment disorder with depressed mood [Fatal]
  - Bone erosion [Fatal]
  - Exostosis [Fatal]
  - Gait disturbance [Fatal]
  - Gastrointestinal disorder [Fatal]
  - Ill-defined disorder [Fatal]
  - Inflammation [Fatal]
  - Laryngitis [Fatal]
  - Live birth [Fatal]
  - Medication error [Fatal]
  - Memory impairment [Fatal]
  - Product quality issue [Not Recovered/Not Resolved]
  - Red blood cell sedimentation rate increased [Fatal]
  - Joint stiffness [Fatal]
  - Retinitis [Fatal]
  - C-reactive protein abnormal [Fatal]
  - Osteoporosis [Fatal]
  - Tachycardia [Fatal]
  - Upper respiratory tract infection [Fatal]
  - Visual impairment [Fatal]
  - Ear infection [Fatal]
  - Therapeutic product effect incomplete [Fatal]
  - Amnesia [Fatal]
  - Weight fluctuation [Fatal]
  - Joint dislocation [Fatal]
  - Hypercholesterolaemia [Fatal]
  - Muscular weakness [Fatal]
  - Sleep disorder [Fatal]
  - Liver function test increased [Fatal]
  - Impaired healing [Fatal]
  - Irritable bowel syndrome [Fatal]
  - Nasopharyngitis [Fatal]
  - Onychomadesis [Fatal]
  - Dyspepsia [Fatal]
  - Discomfort [Fatal]
  - Hypersensitivity [Fatal]
  - Intentional product use issue [Fatal]
  - Contraindicated product administered [Fatal]
  - Hypokalaemia [Not Recovered/Not Resolved]
  - Drug intolerance [Fatal]
  - Polyarthritis [Not Recovered/Not Resolved]
  - Joint destruction [Not Recovered/Not Resolved]
  - Immunodeficiency [Not Recovered/Not Resolved]
  - Drug tolerance [Unknown]
  - Incorrect route of product administration [Fatal]
  - Drug ineffective for unapproved indication [Fatal]
  - Dry mouth [Fatal]
  - Folliculitis [Fatal]
  - Dyspnoea [Fatal]
  - Ear pain [Fatal]
  - Grip strength decreased [Fatal]
  - Joint range of motion decreased [Fatal]
  - Lip dry [Fatal]
  - Nail disorder [Fatal]
  - Weight decreased [Fatal]
  - Colitis ulcerative [Fatal]
  - Dislocation of vertebra [Unknown]
  - Leukopenia [Not Recovered/Not Resolved]
  - Disability [Fatal]
  - Rash pruritic [Not Recovered/Not Resolved]
  - Frequent bowel movements [Fatal]
  - Oedema peripheral [Fatal]
  - Anti-cyclic citrullinated peptide antibody [Fatal]
  - Feeling hot [Fatal]
  - Bronchitis [Fatal]
  - Pregnancy [Unknown]
  - Adverse event [Fatal]
  - Hypertransaminasaemia [Not Recovered/Not Resolved]
  - Maternal exposure timing unspecified [Unknown]
  - Exposure during pregnancy [Not Recovered/Not Resolved]
  - Arthritis [Fatal]
  - Foot deformity [Fatal]
  - Prescribed underdose [Fatal]
